FAERS Safety Report 14984349 (Version 1)
Quarter: 2018Q2

REPORT INFORMATION
  Report Type: Spontaneous
  Country: US (occurrence: US)
  Receive Date: 20180515
  Receipt Date: 20180515
  Transmission Date: 20180711
  Serious: Yes (Hospitalization)
  Sender: FDA-Public Use
  Company Number: None

PATIENT
  Age: 93 Year
  Sex: Male
  Weight: 63.96 kg

DRUGS (17)
  1. VIDAZA [Concomitant]
     Active Substance: AZACITIDINE
  2. ZOFRAN [Concomitant]
     Active Substance: ONDANSETRON HYDROCHLORIDE
  3. FLONASE [Concomitant]
     Active Substance: FLUTICASONE PROPIONATE
  4. TRIAMCINOLONE [Concomitant]
     Active Substance: TRIAMCINOLONE
  5. CLOCAE [Concomitant]
  6. VITAMIN B-1 [Concomitant]
     Active Substance: THIAMINE
  7. MIRALAX [Concomitant]
     Active Substance: POLYETHYLENE GLYCOL 3350
  8. NITROSTAT [Concomitant]
     Active Substance: NITROGLYCERIN
  9. ROSADAN [Concomitant]
     Active Substance: METRONIDAZOLE
  10. NEURONTIN [Concomitant]
     Active Substance: GABAPENTIN
  11. NEXIUM [Concomitant]
     Active Substance: ESOMEPRAZOLE MAGNESIUM
  12. TRIAMCINOLONE [Concomitant]
     Active Substance: TRIAMCINOLONE
  13. JADENU [Suspect]
     Active Substance: DEFERASIROX
     Indication: HAEMOCHROMATOSIS TRAIT
     Route: 048
     Dates: start: 20180322
  14. ISOSORBIDE. [Concomitant]
     Active Substance: ISOSORBIDE
  15. SUPREP BOWEL PREP [Concomitant]
     Active Substance: MAGNESIUM SULFATE\POTASSIUM SULFATE\SODIUM SULFATE
  16. PRAVACHOL [Concomitant]
     Active Substance: PRAVASTATIN SODIUM
  17. ATIVAN [Concomitant]
     Active Substance: LORAZEPAM

REACTIONS (1)
  - Epistaxis [None]
